FAERS Safety Report 4861140-6 (Version None)
Quarter: 2005Q4

REPORT INFORMATION
  Report Type: 
  Country: None (occurrence: None)
  Receive Date: 20051220
  Receipt Date: 20040921
  Transmission Date: 20060501
  Serious: Yes (Hospitalization)
  Sender: FDA-Public Use
  Company Number: NL-SANOFI-SYNTHELABO-F01200402869

PATIENT
  Sex: Female
  Weight: 65.6 kg

DRUGS (4)
  1. OXALIPLATIN [Suspect]
     Indication: RECTAL CANCER
     Route: 042
     Dates: start: 20040920, end: 20040920
  2. OXALIPLATIN [Suspect]
     Route: 042
     Dates: start: 20041004, end: 20041004
  3. CAPECITABINE [Suspect]
     Dosage: 825 MG/M2 TWICE DAILY FOR 5 DAYS OF WEEKS 1 TO 5
     Route: 048
     Dates: start: 20040920, end: 20040924
  4. CAPECITABINE [Suspect]
     Dosage: 1650 MG (825 MG/M2 TWICE DAILY FOR 5 DAYS OF WEEKS 1 TO 5)
     Route: 048
     Dates: start: 20041004, end: 20041008

REACTIONS (4)
  - ASTHENIA [None]
  - DIARRHOEA [None]
  - PNEUMONIA [None]
  - SEPSIS [None]
